FAERS Safety Report 7789875-6 (Version None)
Quarter: 2011Q3

REPORT INFORMATION
  Report Type: 
  Country: None (occurrence: None)
  Receive Date: 20110930
  Receipt Date: 20110215
  Transmission Date: 20111222
  Serious: No
  Sender: FDA-Public Use
  Company Number: US-ASTRAZENECA-2011SE09047

PATIENT

DRUGS (2)
  1. ANASTROZOLE [Suspect]
     Route: 048
     Dates: end: 20080924
  2. LUPRON [Concomitant]

REACTIONS (2)
  - CONFUSIONAL STATE [None]
  - DRUG DOSE OMISSION [None]
